FAERS Safety Report 15451477 (Version 1)
Quarter: 2018Q4

REPORT INFORMATION
  Report Type: Spontaneous
  Country: HR (occurrence: HR)
  Receive Date: 20181001
  Receipt Date: 20181001
  Transmission Date: 20190204
  Serious: Yes (Hospitalization, Other)
  Sender: FDA-Public Use
  Company Number: PHHY2018HR104284

PATIENT
  Age: 65 Year
  Sex: Female

DRUGS (3)
  1. MARTEFARIN [Concomitant]
     Active Substance: WARFARIN
     Indication: PROPHYLAXIS
     Dosage: UNK
     Route: 048
     Dates: start: 201409
  2. VALSACOMBI [Concomitant]
     Indication: ARTERIAL DISORDER
     Dosage: UNK
     Route: 048
     Dates: start: 201709
  3. COSENTYX [Suspect]
     Active Substance: SECUKINUMAB
     Indication: PSORIASIS
     Dosage: UNK
     Route: 058
     Dates: start: 20171024, end: 20180606

REACTIONS (1)
  - Endometrial adenocarcinoma [Recovered/Resolved with Sequelae]

NARRATIVE: CASE EVENT DATE: 20180608
